FAERS Safety Report 11492893 (Version 1)
Quarter: 2015Q3

REPORT INFORMATION
  Report Type: Report from Study
  Country: US (occurrence: US)
  Receive Date: 20150911
  Receipt Date: 20150911
  Transmission Date: 20151125
  Serious: Yes (Death, Other)
  Sender: FDA-Public Use
  Company Number: PHEH2014US024862

PATIENT
  Sex: Male

DRUGS (3)
  1. ICLUSIG [Suspect]
     Active Substance: PONATINIB
     Indication: PRODUCT USED FOR UNKNOWN INDICATION
     Route: 065
     Dates: start: 2013
  2. GLEEVEC [Suspect]
     Active Substance: IMATINIB MESYLATE
     Indication: CHRONIC MYELOID LEUKAEMIA
     Dosage: 400 MG, QD
     Route: 048
  3. GLEEVEC [Suspect]
     Active Substance: IMATINIB MESYLATE
     Dosage: 400 MG, BID
     Route: 048

REACTIONS (5)
  - Chronic myeloid leukaemia recurrent [Unknown]
  - Drug resistance [Unknown]
  - CSF cell count increased [Unknown]
  - Death [Fatal]
  - White blood cell count increased [Unknown]

NARRATIVE: CASE EVENT DATE: 2013
